FAERS Safety Report 25229017 (Version 1)
Quarter: 2025Q2

REPORT INFORMATION
  Report Type: Report from Study
  Country: US (occurrence: None)
  Receive Date: 20250423
  Receipt Date: 20250423
  Transmission Date: 20250717
  Serious: Yes (Other)
  Sender: ADAMAS PHARMA
  Company Number: US-ADAMAS Pharma-ADM202310-004239

PATIENT
  Age: 86 Year
  Sex: Male

DRUGS (9)
  1. GOCOVRI [Suspect]
     Active Substance: AMANTADINE
     Indication: Dyskinesia
     Dosage: /DAILY AS DIRECTED
     Route: 048
     Dates: start: 20230603, end: 20250318
  2. GOCOVRI [Suspect]
     Active Substance: AMANTADINE
     Indication: Parkinson^s disease
  3. ALEVE [Concomitant]
     Active Substance: NAPROXEN SODIUM
  4. ATORVASTATIN [Concomitant]
     Active Substance: ATORVASTATIN
  5. CARBIDOPA\LEVODOPA [Concomitant]
     Active Substance: CARBIDOPA\LEVODOPA
  6. GABAPENTIN [Concomitant]
     Active Substance: GABAPENTIN
  7. METOPROLOL TARTRATE [Concomitant]
     Active Substance: METOPROLOL TARTRATE
  8. RYTARY [Concomitant]
     Active Substance: CARBIDOPA\LEVODOPA
  9. TYLENOL [Concomitant]
     Active Substance: ACETAMINOPHEN

REACTIONS (10)
  - Delirium [Unknown]
  - Malaise [Not Recovered/Not Resolved]
  - Constipation [Unknown]
  - Dizziness postural [Unknown]
  - Somnolence [Unknown]
  - Dry mouth [Unknown]
  - Peripheral swelling [Unknown]
  - Hallucination [Unknown]
  - Fatigue [Unknown]
  - Confusional state [Unknown]

NARRATIVE: CASE EVENT DATE: 20250318
